FAERS Safety Report 18019509 (Version 1)
Quarter: 2020Q3

REPORT INFORMATION
  Report Type: Other
  Country: US (occurrence: US)
  Receive Date: 20200714
  Receipt Date: 20200714
  Transmission Date: 20201103
  Serious: Yes (Other)
  Sender: FDA-Public Use
  Company Number: US-ROCHE-2640832

PATIENT
  Sex: Female

DRUGS (2)
  1. OCREVUS [Suspect]
     Active Substance: OCRELIZUMAB
     Indication: MULTIPLE SCLEROSIS
     Dosage: DATE OF TREATMENT= 31/AUG/2018, 17/FEB/2019, 05/SEP/2019, 02/MAR/2020.
     Route: 065
  2. OCREVUS [Suspect]
     Active Substance: OCRELIZUMAB
     Route: 042

REACTIONS (2)
  - Urinary tract infection [Unknown]
  - Gait disturbance [Unknown]
